FAERS Safety Report 24654536 (Version 3)
Quarter: 2024Q4

REPORT INFORMATION
  Report Type: Spontaneous
  Country: JP (occurrence: JP)
  Receive Date: 20241122
  Receipt Date: 20241231
  Transmission Date: 20250115
  Serious: Yes (Other)
  Sender: BAYER HEALTHCARE PHARMACEUTICALS INC.
  Company Number: JP-BAYER-2023A115094

PATIENT
  Age: 78 Year
  Sex: Male
  Weight: 47 kg

DRUGS (10)
  1. NUBEQA [Suspect]
     Active Substance: DAROLUTAMIDE
     Indication: Hormone-dependent prostate cancer
     Dosage: DAILY DOSE 1200MG
     Route: 048
     Dates: start: 20230501, end: 20230806
  2. NUBEQA [Suspect]
     Active Substance: DAROLUTAMIDE
     Indication: Mixed adenoneuroendocrine carcinoma
     Dosage: DAILY DOSE 1200MG
     Route: 048
     Dates: start: 20230827
  3. DOCETAXEL [Suspect]
     Active Substance: DOCETAXEL
     Indication: Hormone-dependent prostate cancer
     Dosage: DAILY DOSE 105 MG
     Route: 041
     Dates: start: 20230517
  4. DOCETAXEL [Suspect]
     Active Substance: DOCETAXEL
     Indication: Mixed adenoneuroendocrine carcinoma
     Dosage: DAILY DOSE 109 MG
     Route: 041
     Dates: start: 20230607
  5. DOCETAXEL [Suspect]
     Active Substance: DOCETAXEL
     Indication: Hormone-dependent prostate cancer
     Dosage: DAILY DOSE 109 MG
     Route: 041
     Dates: start: 20230628
  6. DOCETAXEL [Suspect]
     Active Substance: DOCETAXEL
     Indication: Hormone-dependent prostate cancer
     Dosage: DAILY DOSE 109 MG
     Route: 041
     Dates: start: 20230719
  7. DOCETAXEL [Suspect]
     Active Substance: DOCETAXEL
     Indication: Hormone-dependent prostate cancer
     Dosage: DAILY DOSE 90 MG
     Route: 041
     Dates: start: 20230920
  8. DOCETAXEL [Suspect]
     Active Substance: DOCETAXEL
     Indication: Hormone-dependent prostate cancer
     Dosage: DAILY DOSE 80 MG
     Route: 041
     Dates: start: 20231011
  9. DEGARELIX [Concomitant]
     Active Substance: DEGARELIX
     Indication: Mixed adenoneuroendocrine carcinoma
     Dosage: 240 MG, INITIAL DOSE
  10. DEGARELIX [Concomitant]
     Active Substance: DEGARELIX
     Indication: Mixed adenoneuroendocrine carcinoma
     Dosage: 480 MG, Q3MON
     Route: 058

REACTIONS (3)
  - Hepatic failure [Recovering/Resolving]
  - Aspartate aminotransferase increased [Recovering/Resolving]
  - Alanine aminotransferase increased [Recovering/Resolving]

NARRATIVE: CASE EVENT DATE: 20230807
